FAERS Safety Report 12718214 (Version 1)
Quarter: 2016Q3

REPORT INFORMATION
  Report Type: Spontaneous
  Country: US (occurrence: US)
  Receive Date: 20160906
  Receipt Date: 20160906
  Transmission Date: 20161109
  Serious: No
  Sender: FDA-Public Use
  Company Number: US-009507513-1608USA013222

PATIENT
  Sex: Male

DRUGS (1)
  1. KEYTRUDA [Suspect]
     Active Substance: PEMBROLIZUMAB
     Indication: HEREDITARY NON-POLYPOSIS COLORECTAL CANCER SYNDROME
     Dosage: ONCE EVERY 3 WEEKS, 4 DOSES IN TOTAL
     Route: 042

REACTIONS (3)
  - No adverse event [Unknown]
  - Intentional product misuse [Unknown]
  - Therapeutic response unexpected [Unknown]
